FAERS Safety Report 25224652 (Version 1)
Quarter: 2025Q2

REPORT INFORMATION
  Report Type: Spontaneous
  Country: JP (occurrence: JP)
  Receive Date: 20250422
  Receipt Date: 20250422
  Transmission Date: 20250716
  Serious: Yes (Other)
  Sender: BAYER HEALTHCARE PHARMACEUTICALS INC.
  Company Number: JP-BAYER-2025A051405

PATIENT
  Age: 5 Decade
  Sex: Female

DRUGS (2)
  1. MIRENA [Suspect]
     Active Substance: LEVONORGESTREL
     Indication: Uterine leiomyoma
     Dosage: 20?G/DAY
     Route: 015
  2. DIENOGEST [Concomitant]
     Active Substance: DIENOGEST
     Indication: Uterine leiomyoma

REACTIONS (2)
  - Uterine leiomyoma [Not Recovered/Not Resolved]
  - Off label use [None]
